FAERS Safety Report 6764367-1 (Version None)
Quarter: 2010Q2

REPORT INFORMATION
  Report Type: 
  Country: None (occurrence: None)
  Receive Date: 20100610
  Receipt Date: 20100608
  Transmission Date: 20101027
  Serious: Yes (Other)
  Sender: FDA-Public Use
  Company Number: US-BRISTOL-MYERS SQUIBB COMPANY-15117799

PATIENT
  Age: 4 Year
  Sex: Female
  Weight: 33 kg

DRUGS (4)
  1. ABILIFY [Suspect]
     Indication: AUTISM SPECTRUM DISORDER
     Dosage: 2 MG:17APR10,5MG;12MAY10
     Route: 048
     Dates: start: 20100427
  2. ALBUTEROL [Concomitant]
  3. SINGULAIR [Concomitant]
  4. BENADRYL [Concomitant]

REACTIONS (2)
  - EYE ROLLING [None]
  - HALLUCINATION [None]
